FAERS Safety Report 4950584-X (Version None)
Quarter: 2006Q1

REPORT INFORMATION
  Report Type: 
  Country: None (occurrence: None)
  Receive Date: 20060321
  Receipt Date: 20060321
  Transmission Date: 20060701
  Serious: Yes (Hospitalization)
  Sender: FDA-Public Use
  Company Number: None

PATIENT
  Age: 62 Year
  Sex: Female
  Weight: 48 kg

DRUGS (3)
  1. TEQUIN [Suspect]
     Indication: COLITIS
     Dosage: 400 MG DAILY PO
     Route: 048
     Dates: start: 20060213, end: 20060219
  2. TEQUIN [Suspect]
     Indication: DIARRHOEA
     Dosage: 400 MG DAILY PO
     Route: 048
     Dates: start: 20060213, end: 20060219
  3. NPH INSULIN [Suspect]
     Dosage: DAILY SUBCUT [ABOUT FEW YEARS]
     Route: 058

REACTIONS (1)
  - DIABETIC KETOACIDOSIS [None]
